FAERS Safety Report 18868724 (Version 4)
Quarter: 2021Q1

REPORT INFORMATION
  Report Type: Spontaneous
  Country: US (occurrence: US)
  Receive Date: 20210209
  Receipt Date: 20210219
  Transmission Date: 20210420
  Serious: Yes (Hospitalization)
  Sender: FDA-Public Use
  Company Number: US-CELGENEUS-USA-20210201402

PATIENT
  Age: 79 Year
  Sex: Male
  Weight: 103.06 kg

DRUGS (2)
  1. POMALYST [Suspect]
     Active Substance: POMALIDOMIDE
     Indication: PLASMA CELL MYELOMA
     Dosage: 4 MILLIGRAM
     Route: 048
     Dates: start: 20200609, end: 20201221
  2. POMALYST [Suspect]
     Active Substance: POMALIDOMIDE
     Dosage: 2 MILLIGRAM
     Route: 048
     Dates: start: 202102

REACTIONS (4)
  - Dyspnoea [Recovered/Resolved]
  - Fatigue [Recovered/Resolved]
  - Haemoglobin decreased [Recovered/Resolved]
  - Physical deconditioning [Recovered/Resolved]

NARRATIVE: CASE EVENT DATE: 20201221
